FAERS Safety Report 5695077-X (Version None)
Quarter: 2008Q2

REPORT INFORMATION
  Report Type: 
  Country: None (occurrence: None)
  Receive Date: 20080404
  Receipt Date: 20080325
  Transmission Date: 20081010
  Serious: Yes (Hospitalization)
  Sender: FDA-Public Use
  Company Number: CA-PFIZER INC-2008013211

PATIENT
  Sex: Male
  Weight: 75 kg

DRUGS (6)
  1. SU-011,248 [Suspect]
     Indication: GERM CELL CANCER
     Route: 048
     Dates: start: 20070927, end: 20080205
  2. ELOCON [Concomitant]
     Indication: SKIN REACTION
     Route: 061
  3. PANTOPRAZOLE SODIUM [Concomitant]
     Route: 048
     Dates: start: 20080109
  4. MAXERAN [Concomitant]
     Route: 048
     Dates: start: 20071010
  5. MORPHINE [Concomitant]
     Route: 048
     Dates: start: 20050101
  6. MORPHINE [Concomitant]
     Dosage: TEXT:UP TO 15 MG
     Route: 048
     Dates: start: 20060101

REACTIONS (1)
  - PERINEAL ABSCESS [None]
